FAERS Safety Report 9247733 (Version 1)
Quarter: 2013Q2

REPORT INFORMATION
  Report Type: Spontaneous
  Country: DE (occurrence: DE)
  Receive Date: 20130423
  Receipt Date: 20130423
  Transmission Date: 20140414
  Serious: Yes (Other)
  Sender: FDA-Public Use
  Company Number: DE-PFIZER INC-2013121651

PATIENT
  Age: 24 Year
  Sex: Female

DRUGS (1)
  1. LEIOS [Suspect]
     Dosage: UNK

REACTIONS (2)
  - Gastroenteritis viral [Unknown]
  - Inappropriate schedule of drug administration [Unknown]
